FAERS Safety Report 4675580-1 (Version None)
Quarter: 2005Q2

REPORT INFORMATION
  Report Type: 
  Country: None (occurrence: None)
  Receive Date: 20050527
  Receipt Date: 20050419
  Transmission Date: 20051028
  Serious: No
  Sender: FDA-Public Use
  Company Number: US-BRISTOL-MYERS SQUIBB COMPANY-12938759

PATIENT
  Sex: Male

DRUGS (2)
  1. ABILIFY [Suspect]
  2. SEROQUEL [Concomitant]

REACTIONS (2)
  - DRUG INEFFECTIVE [None]
  - PSYCHOTIC DISORDER [None]
